FAERS Safety Report 10203168 (Version 1)
Quarter: 2014Q2

REPORT INFORMATION
  Report Type: Report from Study
  Country: US (occurrence: US)
  Receive Date: 20140529
  Receipt Date: 20140529
  Transmission Date: 20141212
  Serious: Yes (Hospitalization, Other)
  Sender: FDA-Public Use
  Company Number: US-BIOGENIDEC-2014BI049414

PATIENT
  Sex: Female

DRUGS (1)
  1. AVONEX [Suspect]
     Indication: MULTIPLE SCLEROSIS
     Route: 030
     Dates: start: 19991022

REACTIONS (6)
  - Breast cancer [Unknown]
  - Abasia [Unknown]
  - Memory impairment [Unknown]
  - Pyrexia [Unknown]
  - Fatigue [Unknown]
  - Malaise [Unknown]
